FAERS Safety Report 6479682-9 (Version None)
Quarter: 2009Q4

REPORT INFORMATION
  Report Type: 
  Country: None (occurrence: None)
  Receive Date: 20091208
  Receipt Date: 20091126
  Transmission Date: 20100525
  Serious: Yes (Hospitalization)
  Sender: FDA-Public Use
  Company Number: JP-ASTRAZENECA-2009SE30243

PATIENT
  Age: 39 Year
  Sex: Male

DRUGS (10)
  1. MEROPEN [Suspect]
     Indication: PNEUMONIA
     Route: 042
     Dates: start: 20091020, end: 20091025
  2. DORMICUM [Concomitant]
     Indication: SEDATION
     Route: 042
  3. LACTEC [Concomitant]
     Indication: FLUID REPLACEMENT
     Route: 042
     Dates: start: 20091018
  4. MUSCURATE [Concomitant]
     Indication: CONVULSION PROPHYLAXIS
     Route: 042
     Dates: start: 20091018, end: 20091018
  5. PITRESSIN [Concomitant]
     Indication: DIABETES INSIPIDUS
     Route: 042
     Dates: start: 20091018
  6. THIOPENTAL SODIUM [Concomitant]
     Indication: CONVULSION PROPHYLAXIS
     Route: 042
     Dates: start: 20091018
  7. GLYCEOL [Concomitant]
     Indication: BRAIN OEDEMA
     Route: 042
     Dates: start: 20091018, end: 20091019
  8. ZANTAC [Concomitant]
     Indication: GASTRIC ULCER
     Route: 042
     Dates: start: 20091018
  9. SEFMAZON [Concomitant]
     Indication: WOUND INFECTION
     Route: 042
     Dates: start: 20091018, end: 20091020
  10. ASPARA POTASSIUM [Concomitant]
     Indication: HYPOKALAEMIA
     Route: 042
     Dates: start: 20091019

REACTIONS (1)
  - HEPATIC FUNCTION ABNORMAL [None]
